FAERS Safety Report 21458978 (Version 1)
Quarter: 2022Q4

REPORT INFORMATION
  Report Type: Spontaneous
  Country: US (occurrence: None)
  Receive Date: 20221013
  Receipt Date: 20221013
  Transmission Date: 20230113
  Serious: No
  Sender: FDA-Public Use
  Company Number: None

PATIENT
  Age: 50 Year
  Sex: Male

DRUGS (1)
  1. AMBRISENTAN [Suspect]
     Active Substance: AMBRISENTAN
     Indication: Pulmonary arterial hypertension
     Dosage: FREQUENCY : DAILY;?
     Route: 048
     Dates: start: 20220124

REACTIONS (10)
  - Anaemia [None]
  - Faeces discoloured [None]
  - Tachycardia [None]
  - Oxygen saturation decreased [None]
  - Red blood cell transfusion [None]
  - Peripheral swelling [None]
  - Blood urea decreased [None]
  - Blood creatine decreased [None]
  - Peripheral swelling [None]
  - Occult blood positive [None]

NARRATIVE: CASE EVENT DATE: 20220921
